FAERS Safety Report 14405243 (Version 2)
Quarter: 2020Q4

REPORT INFORMATION
  Report Type: Spontaneous
  Country: US (occurrence: US)
  Receive Date: 20180118
  Receipt Date: 20201111
  Transmission Date: 20210113
  Serious: Yes (Life-Threatening, Hospitalization, Other)
  Sender: FDA-Public Use
  Company Number: US-CIPLA LTD.-2018US01085

PATIENT

DRUGS (8)
  1. NOREPINEPHRINE. [Suspect]
     Active Substance: NOREPINEPHRINE
     Indication: HYPOTENSION
     Dosage: UNK
     Route: 065
  2. FENTANYL. [Concomitant]
     Active Substance: FENTANYL
     Indication: AIRWAY PATENCY DEVICE INSERTION
     Dosage: 150 MCG, UNK
     Route: 065
  3. ALPRAZOLAM. [Concomitant]
     Active Substance: ALPRAZOLAM
     Indication: PRODUCT USED FOR UNKNOWN INDICATION
     Dosage: UNK
     Route: 065
  4. BUPROPION. [Suspect]
     Active Substance: BUPROPION
     Dosage: UNK, UNKNOWN QUANTITY
     Route: 048
  5. LORAZEPAM. [Suspect]
     Active Substance: LORAZEPAM
     Indication: STATUS EPILEPTICUS
     Dosage: UNK
     Route: 065
  6. SODIUM BICARBONATE. [Suspect]
     Active Substance: SODIUM BICARBONATE
     Indication: HYPOTENSION
     Dosage: UNK
     Route: 065
  7. ETOMIDATE. [Concomitant]
     Active Substance: ETOMIDATE
     Indication: AIRWAY PATENCY DEVICE INSERTION
     Dosage: 30 MG, UNK
     Route: 065
  8. LEVETIRACETAM. [Suspect]
     Active Substance: LEVETIRACETAM
     Indication: STATUS EPILEPTICUS
     Dosage: UNK
     Route: 065

REACTIONS (14)
  - Status epilepticus [Unknown]
  - Lethargy [Unknown]
  - Hypotension [Unknown]
  - Respiratory disorder [Unknown]
  - Drug ineffective [Unknown]
  - Pulseless electrical activity [Unknown]
  - Electrocardiogram QT prolonged [Unknown]
  - Electrocardiogram QRS complex prolonged [Unknown]
  - Sinus tachycardia [Unknown]
  - Suicide attempt [Unknown]
  - Weaning failure [Unknown]
  - Intentional overdose [Unknown]
  - Coma [Recovered/Resolved]
  - Cardiac arrest [Unknown]
